FAERS Safety Report 6591114-9 (Version None)
Quarter: 2010Q1

REPORT INFORMATION
  Report Type: 
  Country: None (occurrence: None)
  Receive Date: 20100219
  Receipt Date: 20100209
  Transmission Date: 20100710
  Serious: Yes (Disabling, Other)
  Sender: FDA-Public Use
  Company Number: IT-BRISTOL-MYERS SQUIBB COMPANY-14972988

PATIENT
  Age: 70 Year
  Sex: Female

DRUGS (12)
  1. APIXABAN [Suspect]
     Indication: EMBOLISM
     Route: 058
     Dates: start: 20100108, end: 20100208
  2. WARFARIN SODIUM [Suspect]
     Indication: EMBOLISM
     Dosage: INTERRUPTED ON 08-FEB-10
     Route: 048
     Dates: start: 20100108, end: 20100208
  3. ENOXAPARIN SODIUM [Suspect]
     Indication: EMBOLISM
     Route: 058
     Dates: start: 20100108, end: 20100121
  4. PLACEBO [Suspect]
     Indication: EMBOLISM
     Dosage: INTERRUPTED ON 08-FEB-10
     Dates: start: 20100108, end: 20100208
  5. DELTACORTENE [Concomitant]
     Dosage: TAPERING DOSE
     Dates: start: 20100124
  6. MICARDIS [Concomitant]
     Dates: start: 20100107, end: 20100111
  7. SIMVACOR [Concomitant]
     Dates: start: 20100107, end: 20100111
  8. LEVOTHYROXINE SODIUM [Concomitant]
     Dates: start: 20100108, end: 20100121
  9. LEVOFLOXACIN [Concomitant]
     Dates: start: 20100108, end: 20100123
  10. OMEPRAZOLE [Concomitant]
     Dates: start: 20100108, end: 20100128
  11. FLUIMUCIL [Concomitant]
     Dates: start: 20100121, end: 20100123
  12. DOBUTAMINE [Concomitant]
     Dosage: 1 DOSAGE FORM = 5 GRAMS EVERY 12-14 HOURS

REACTIONS (3)
  - POLYNEUROPATHY [None]
  - RESPIRATORY FAILURE [None]
  - VIRAL INFECTION [None]
